FAERS Safety Report 22370394 (Version 1)
Quarter: 2023Q2

REPORT INFORMATION
  Report Type: Spontaneous
  Country: US (occurrence: US)
  Receive Date: 20230526
  Receipt Date: 20230526
  Transmission Date: 20230721
  Serious: No
  Sender: FDA-Public Use
  Company Number: US-GLENMARK PHARMACEUTICALS-2023GMK077988

PATIENT

DRUGS (7)
  1. PRAVASTATIN SODIUM [Suspect]
     Active Substance: PRAVASTATIN SODIUM
     Indication: Blood cholesterol abnormal
     Dosage: 1 DOSAGE FORM, A DAY EVERY OTHER DAY
     Route: 048
  2. PRAVASTATIN SODIUM [Suspect]
     Active Substance: PRAVASTATIN SODIUM
     Indication: Arthralgia
  3. PRAVASTATIN SODIUM [Suspect]
     Active Substance: PRAVASTATIN SODIUM
     Indication: Blood pressure abnormal
  4. BUPROPION [Suspect]
     Active Substance: BUPROPION
     Indication: Blood pressure abnormal
     Dosage: 75 MILLIGRAM, OD
     Route: 065
  5. LOSARTAN POTASSIUM [Suspect]
     Active Substance: LOSARTAN POTASSIUM
     Indication: Blood pressure abnormal
     Dosage: 25 MILLIGRAM, OD
     Route: 048
  6. DIETARY SUPPLEMENT [Suspect]
     Active Substance: DIETARY SUPPLEMENT
     Indication: Immunisation
     Dosage: 1000 MILLIGRAM
     Route: 065
     Dates: start: 20230104
  7. ALBUTEROL [Concomitant]
     Active Substance: ALBUTEROL
     Indication: Asthma
     Dosage: UNK
     Route: 065

REACTIONS (5)
  - Treatment noncompliance [Unknown]
  - Insomnia [Unknown]
  - Product use in unapproved indication [Unknown]
  - Dysgeusia [Not Recovered/Not Resolved]
  - Abdominal pain upper [Unknown]

NARRATIVE: CASE EVENT DATE: 20230105
